FAERS Safety Report 5334846-2 (Version None)
Quarter: 2007Q2

REPORT INFORMATION
  Report Type: 
  Country: None (occurrence: None)
  Receive Date: 20070525
  Receipt Date: 20070515
  Transmission Date: 20071010
  Serious: Yes (Death, Hospitalization, Other)
  Sender: FDA-Public Use
  Company Number: JP-ROCHE-497112

PATIENT
  Sex: Female

DRUGS (3)
  1. XELODA [Suspect]
     Indication: BREAST CANCER
     Route: 048
     Dates: start: 20070301, end: 20070401
  2. HYSRON [Concomitant]
     Indication: BREAST CANCER
     Route: 048
     Dates: start: 20070301
  3. WARFARIN SODIUM [Concomitant]
     Route: 048

REACTIONS (3)
  - ANAEMIA [None]
  - CYSTITIS HAEMORRHAGIC [None]
  - THROMBOSIS [None]
